FAERS Safety Report 13183915 (Version 2)
Quarter: 2017Q4

REPORT INFORMATION
  Report Type: Spontaneous
  Country: US (occurrence: US)
  Receive Date: 20170203
  Receipt Date: 20171008
  Transmission Date: 20180320
  Serious: No
  Sender: FDA-Public Use
  Company Number: US-TEVA-731036ACC

PATIENT
  Sex: Female

DRUGS (24)
  1. ESTROPIPATE. [Concomitant]
     Active Substance: ESTROPIPATE
     Dates: start: 20060203, end: 20170120
  2. BIOTIN [Concomitant]
     Active Substance: BIOTIN
     Dates: start: 20170120
  3. TRAZODONE [Concomitant]
     Active Substance: TRAZODONE HYDROCHLORIDE
     Dates: start: 20170823
  4. TYLENOL [Concomitant]
     Active Substance: ACETAMINOPHEN
     Dates: start: 20161118
  5. ESTROPIPATE. [Concomitant]
     Active Substance: ESTROPIPATE
     Dates: start: 20170117, end: 20170120
  6. FISH OIL [Concomitant]
     Active Substance: FISH OIL
     Dates: start: 20170120
  7. PENICILLIN VK [Concomitant]
     Active Substance: PENICILLIN V POTASSIUM
     Dates: start: 20170531
  8. VITAMIN D3 [Concomitant]
     Active Substance: CHOLECALCIFEROL
     Dosage: 2000 UNIT
     Dates: start: 20160921
  9. LEVOTHYROXINE. [Concomitant]
     Active Substance: LEVOTHYROXINE
     Dates: start: 20060203
  10. NAPROXEN. [Concomitant]
     Active Substance: NAPROXEN
     Dates: start: 20060203
  11. HYDROCODONE BITARTRATE AND ACETAMINOPHEN [Concomitant]
     Active Substance: ACETAMINOPHEN\HYDROCODONE BITARTRATE
     Dosage: SOLUTION, 7.5-325
     Dates: start: 20060203, end: 20160921
  12. COPAXONE [Suspect]
     Active Substance: GLATIRAMER ACETATE
     Indication: MULTIPLE SCLEROSIS
     Route: 058
     Dates: start: 20140530
  13. OMEGA-3 ACIDS [Concomitant]
     Active Substance: OMEGA-3 FATTY ACIDS
     Dates: start: 20170823
  14. COPAXONE [Suspect]
     Active Substance: GLATIRAMER ACETATE
     Route: 058
     Dates: start: 20060303
  15. ESTROPIPATE. [Concomitant]
     Active Substance: ESTROPIPATE
     Dates: start: 20170120
  16. ALPRAZOLAM. [Concomitant]
     Active Substance: ALPRAZOLAM
     Dates: start: 20060203, end: 20161216
  17. VITAMIN B12 [Concomitant]
     Active Substance: CYANOCOBALAMIN
     Dates: start: 20170823
  18. VITAMIN C [Concomitant]
     Active Substance: ASCORBIC ACID
     Dates: start: 20060203, end: 20160921
  19. VITAMIN B COMPLEX [Concomitant]
     Active Substance: CYANOCOBALAMIN\DEXPANTHENOL\NIACINAMIDE\PYRIDOXINE HYDROCHLORIDE\RIBOFLAVIN 5^-PHOSPHATE SODIUM\THIAMINE HYDROCHLORIDE\VITAMIN B COMPLEX
     Dates: start: 20060203
  20. LEVOTHYROXINE. [Concomitant]
     Active Substance: LEVOTHYROXINE
     Dates: start: 20170823
  21. LEVOTHYROXINE. [Concomitant]
     Active Substance: LEVOTHYROXINE
     Dates: start: 20060203, end: 20170120
  22. CENTRUM [Concomitant]
     Active Substance: VITAMINS
     Dates: end: 20161118
  23. HYDROCODONE [Concomitant]
     Active Substance: HYDROCODONE
  24. BLACK COHOSH [Concomitant]
     Active Substance: BLACK COHOSH
     Dates: start: 20060203, end: 20161118

REACTIONS (3)
  - Mobility decreased [Unknown]
  - Drug ineffective [Unknown]
  - Poor peripheral circulation [Not Recovered/Not Resolved]
